FAERS Safety Report 22308266 (Version 1)
Quarter: 2023Q2

REPORT INFORMATION
  Report Type: Spontaneous
  Country: US (occurrence: None)
  Receive Date: 20230511
  Receipt Date: 20230511
  Transmission Date: 20230722
  Serious: No
  Sender: FDA-Public Use
  Company Number: US-ROCHE-3228003

PATIENT
  Sex: Male
  Weight: 99.880 kg

DRUGS (1)
  1. OCREVUS [Suspect]
     Active Substance: OCRELIZUMAB
     Indication: Relapsing-remitting multiple sclerosis
     Dosage: HAD 2ND 300 MG DOSE ON 20-NOV-2022, WILL HAVE NEXT 600 MG DOSE IN 6 MONTHS;
     Route: 042
     Dates: start: 20221106

REACTIONS (1)
  - Pyrexia [Recovered/Resolved]
